FAERS Safety Report 6763728-4 (Version None)
Quarter: 2010Q2

REPORT INFORMATION
  Report Type: 
  Country: None (occurrence: None)
  Receive Date: 20100610
  Receipt Date: 20100602
  Transmission Date: 20101027
  Serious: Yes (Hospitalization)
  Sender: FDA-Public Use
  Company Number: PHHO2010DE05866

PATIENT
  Sex: Female
  Weight: 80 kg

DRUGS (4)
  1. AIN457 AIN++UV [Suspect]
     Indication: UVEITIS
     Dosage: DOUBLE BLIND
     Route: 058
     Dates: start: 20100201, end: 20100412
  2. NEORAL [Suspect]
     Indication: BEHCET'S SYNDROME
     Dosage: 125 MG, BID
     Route: 048
     Dates: start: 20070101, end: 20100412
  3. PREDNISOLONE [Suspect]
     Indication: BEHCET'S SYNDROME
     Dosage: 5 MG, QD
     Route: 048
     Dates: start: 20100119
  4. AMLODIPINE MALEATE [Concomitant]
     Indication: HYPERTENSION

REACTIONS (9)
  - DERMATITIS [None]
  - DISEASE PROGRESSION [None]
  - DRUG INEFFECTIVE [None]
  - EYE INFLAMMATION [None]
  - FOLLICULITIS [None]
  - HYPOPYON [None]
  - PYREXIA [None]
  - RETINAL DISORDER [None]
  - UVEITIS [None]
